FAERS Safety Report 7316127-0 (Version None)
Quarter: 2011Q1

REPORT INFORMATION
  Report Type: 
  Country: None (occurrence: None)
  Receive Date: 20110225
  Receipt Date: 20110223
  Transmission Date: 20110831
  Serious: Yes (Death)
  Sender: FDA-Public Use
  Company Number: CA-ABBOTT-11P-028-0705398-00

PATIENT
  Age: 24 Year
  Sex: Male

DRUGS (6)
  1. UNKNOWN MEDICATION [Interacting]
     Indication: PRODUCT USED FOR UNKNOWN INDICATION
  2. RISPERIDONE [Suspect]
     Indication: PRODUCT USED FOR UNKNOWN INDICATION
  3. QUETIAPINE [Suspect]
  4. SERTRALINE [Suspect]
     Indication: PRODUCT USED FOR UNKNOWN INDICATION
  5. BIAXIN [Interacting]
     Indication: UPPER RESPIRATORY TRACT INFECTION
     Dates: start: 20110101
  6. NEUROPSYCHIATRIC MEDICATIONS [Concomitant]
     Indication: PRODUCT USED FOR UNKNOWN INDICATION

REACTIONS (3)
  - ARRHYTHMIA [None]
  - SUDDEN DEATH [None]
  - DRUG INTERACTION [None]
